FAERS Safety Report 12632241 (Version 2)
Quarter: 2016Q3

REPORT INFORMATION
  Report Type: Spontaneous
  Country: US (occurrence: US)
  Receive Date: 20160808
  Receipt Date: 20160808
  Transmission Date: 20161109
  Serious: No
  Sender: FDA-Public Use
  Company Number: US-BEH-2016062231

PATIENT
  Sex: Female
  Weight: 69 kg

DRUGS (19)
  1. HIZENTRA [Suspect]
     Active Substance: HUMAN IMMUNOGLOBULIN G
     Indication: IMMUNODEFICIENCY
     Route: 058
     Dates: start: 20160210
  2. CLONAZEPAM. [Concomitant]
     Active Substance: CLONAZEPAM
  3. NOVOLOG [Concomitant]
     Active Substance: INSULIN ASPART
  4. SIMVASTATIN. [Concomitant]
     Active Substance: SIMVASTATIN
  5. VITAMIN D [Concomitant]
     Active Substance: CHOLECALCIFEROL
  6. XOPENEX [Concomitant]
     Active Substance: LEVALBUTEROL HYDROCHLORIDE
  7. CALCIUM [Concomitant]
     Active Substance: CALCIUM
  8. PERCOCET [Concomitant]
     Active Substance: ACETAMINOPHEN\OXYCODONE HYDROCHLORIDE
  9. LIDOCAINE. [Concomitant]
     Active Substance: LIDOCAINE
  10. ZOFRAN [Concomitant]
     Active Substance: ONDANSETRON HYDROCHLORIDE
  11. ASPIRIN. [Concomitant]
     Active Substance: ASPIRIN
  12. DIPHENHYDRAMINE. [Concomitant]
     Active Substance: DIPHENHYDRAMINE
  13. ACETAMINOPHEN. [Concomitant]
     Active Substance: ACETAMINOPHEN
  14. COLISTIMETHATE [Concomitant]
     Active Substance: COLISTIMETHATE SODIUM
  15. TRAMADOL. [Concomitant]
     Active Substance: TRAMADOL
  16. BUDESONIDE. [Concomitant]
     Active Substance: BUDESONIDE
  17. GABAPENTIN. [Concomitant]
     Active Substance: GABAPENTIN
  18. PROVENTIL [Concomitant]
     Active Substance: ALBUTEROL
  19. LISINOPRIL. [Concomitant]
     Active Substance: LISINOPRIL

REACTIONS (1)
  - Bronchitis [Unknown]
